FAERS Safety Report 6906155-9 (Version None)
Quarter: 2010Q3

REPORT INFORMATION
  Report Type: 
  Country: None (occurrence: None)
  Receive Date: 20100803
  Receipt Date: 20100803
  Transmission Date: 20110219
  Serious: No
  Sender: FDA-Public Use
  Company Number: None

PATIENT
  Age: 77 Year
  Sex: Male
  Weight: 57.5161 kg

DRUGS (2)
  1. VALTREX [Suspect]
     Indication: OESOPHAGITIS ULCERATIVE
     Dosage: 500 MG DAILY PO
     Route: 048
     Dates: start: 20100723, end: 20100802
  2. VANCOMYCIN [Suspect]
     Indication: CLOSTRIDIUM DIFFICILE COLITIS
     Dosage: 125 MG Q 12 H PO
     Route: 048
     Dates: start: 20100723, end: 20100802

REACTIONS (1)
  - THROMBOCYTOPENIA [None]
